FAERS Safety Report 19167134 (Version 1)
Quarter: 2021Q2

REPORT INFORMATION
  Report Type: Spontaneous
  Country: US (occurrence: US)
  Receive Date: 20210420
  Receipt Date: 20210420
  Transmission Date: 20210717
  Serious: No
  Sender: FDA-Public Use
  Company Number: None

PATIENT
  Age: 45 Year
  Sex: Female
  Weight: 87.75 kg

DRUGS (1)
  1. ADDYI [Suspect]
     Active Substance: FLIBANSERIN
     Indication: LIBIDO DECREASED
     Route: 048
     Dates: start: 20210420, end: 20210420

REACTIONS (8)
  - Nausea [None]
  - Dysarthria [None]
  - Limb discomfort [None]
  - Cerebrovascular accident [None]
  - Palpitations [None]
  - Diarrhoea [None]
  - Dizziness [None]
  - Aphasia [None]

NARRATIVE: CASE EVENT DATE: 20210420
